FAERS Safety Report 6088423-9 (Version None)
Quarter: 2009Q1

REPORT INFORMATION
  Report Type: 
  Country: None (occurrence: None)
  Receive Date: 20090224
  Receipt Date: 20090212
  Transmission Date: 20090719
  Serious: Yes (Other)
  Sender: FDA-Public Use
  Company Number: US-PFIZER INC-2009172410

PATIENT

DRUGS (2)
  1. ZOLOFT [Suspect]
     Dates: start: 20090211
  2. HYDROXYZINE HCL [Suspect]

REACTIONS (1)
  - SEROTONIN SYNDROME [None]
